FAERS Safety Report 11848193 (Version 2)
Quarter: 2016Q1

REPORT INFORMATION
  Report Type: Spontaneous
  Country: US (occurrence: US)
  Receive Date: 20151217
  Receipt Date: 20160120
  Transmission Date: 20160526
  Serious: Yes (Other)
  Sender: FDA-Public Use
  Company Number: US-B.I. PHARMACEUTICALS,INC./RIDGEFIELD-2015-BI-69509BP

PATIENT
  Sex: Female

DRUGS (1)
  1. SPIRIVA [Suspect]
     Active Substance: TIOTROPIUM BROMIDE MONOHYDRATE
     Indication: PRODUCT USED FOR UNKNOWN INDICATION
     Dosage: 18 MCG
     Route: 055
     Dates: start: 201404

REACTIONS (7)
  - Blood pressure abnormal [Unknown]
  - Product quality issue [Unknown]
  - Peripheral swelling [Unknown]
  - Pulmonary thrombosis [Unknown]
  - Dyspnoea [Unknown]
  - Lung disorder [Unknown]
  - Thrombosis [Unknown]

NARRATIVE: CASE EVENT DATE: 201511
